FAERS Safety Report 5348113-4 (Version None)
Quarter: 2007Q2

REPORT INFORMATION
  Report Type: 
  Country: None (occurrence: None)
  Receive Date: 20070606
  Receipt Date: 20070529
  Transmission Date: 20071010
  Serious: Yes (Life-Threatening, Other)
  Sender: FDA-Public Use
  Company Number: JP-AMGEN-US227332

PATIENT
  Sex: Male

DRUGS (8)
  1. ENBREL [Suspect]
     Indication: RHEUMATOID ARTHRITIS
     Route: 058
     Dates: start: 20050825, end: 20061218
  2. ENBREL [Suspect]
     Route: 058
     Dates: start: 20070206
  3. RHEUMATREX [Suspect]
     Indication: RHEUMATOID ARTHRITIS
     Route: 048
     Dates: start: 20041014, end: 20060612
  4. HYPEN [Concomitant]
     Indication: RHEUMATOID ARTHRITIS
     Route: 048
     Dates: start: 20010702, end: 20061201
  5. FOLIAMIN [Concomitant]
     Route: 048
     Dates: start: 20041014, end: 20060612
  6. GASTER [Concomitant]
     Route: 048
     Dates: start: 20031024
  7. CYTOTEC [Concomitant]
     Route: 048
     Dates: start: 20010716
  8. PREDONINE [Concomitant]
     Indication: RHEUMATOID ARTHRITIS
     Route: 048
     Dates: start: 20010702

REACTIONS (1)
  - HEPATITIS B [None]
